FAERS Safety Report 8426923-4 (Version None)
Quarter: 2012Q2

REPORT INFORMATION
  Report Type: 
  Country: None (occurrence: None)
  Receive Date: 20120611
  Receipt Date: 20120601
  Transmission Date: 20120825
  Serious: Yes (Life-Threatening, Hospitalization)
  Sender: FDA-Public Use
  Company Number: BW-ABBOTT-11P-019-0844268-00

PATIENT
  Age: 21 Year
  Sex: Female
  Weight: 72.7 kg

DRUGS (4)
  1. LAMIVUDINE + ZIDOVUDINE [Concomitant]
     Indication: HIV INFECTION
     Route: 048
     Dates: start: 20110228, end: 20110629
  2. TRUVADA [Concomitant]
     Indication: HIV INFECTION
     Route: 048
     Dates: start: 20110630
  3. LOPINAVIR/RITONAVIR [Suspect]
     Indication: HIV INFECTION
     Route: 048
     Dates: start: 20110228
  4. LOPINAVIR/RITONAVIR [Suspect]
     Route: 048
     Dates: start: 20110616

REACTIONS (1)
  - ANAEMIA [None]
